FAERS Safety Report 7793161-8 (Version None)
Quarter: 2011Q4

REPORT INFORMATION
  Report Type: 
  Country: None (occurrence: None)
  Receive Date: 20111003
  Receipt Date: 20110927
  Transmission Date: 20120403
  Serious: Yes (Life-Threatening, Hospitalization, Other)
  Sender: FDA-Public Use
  Company Number: US-ASTRAZENECA-2011SE56959

PATIENT
  Age: 63 Year
  Sex: Female

DRUGS (4)
  1. TOPROL-XL [Suspect]
     Route: 048
  2. SYMBICORT [Suspect]
     Route: 055
  3. PRILOSEC OTC [Suspect]
     Route: 048
  4. NEXIUM [Suspect]
     Route: 048

REACTIONS (6)
  - DIABETES MELLITUS [None]
  - DYSPNOEA [None]
  - DRUG DOSE OMISSION [None]
  - CARDIAC ARREST [None]
  - COUGH [None]
  - MYOCARDIAL INFARCTION [None]
